FAERS Safety Report 11067677 (Version 2)
Quarter: 2015Q2

REPORT INFORMATION
  Report Type: Spontaneous
  Country: RO (occurrence: RO)
  Receive Date: 20150427
  Receipt Date: 20150427
  Transmission Date: 20150821
  Serious: Yes (Life-Threatening, Hospitalization, Other)
  Sender: FDA-Public Use
  Company Number: RO-ABBVIE-15K-135-1380404-00

PATIENT
  Age: 74 Year
  Sex: Female
  Weight: 85 kg

DRUGS (13)
  1. OPTILUTEIN FORTE [Concomitant]
     Indication: CATARACT
     Route: 048
  2. QUINAX [Concomitant]
     Indication: CATARACT
     Route: 047
     Dates: start: 20090416
  3. LEFLUNOMIDE. [Concomitant]
     Active Substance: LEFLUNOMIDE
     Indication: RHEUMATOID ARTHRITIS
     Dates: start: 2009
  4. INDAPAMIDUM [Concomitant]
     Indication: HYPERTENSION
     Route: 048
     Dates: start: 20090416
  5. VERAPAMIL [Concomitant]
     Active Substance: VERAPAMIL HYDROCHLORIDE
     Indication: HYPERTENSION
     Dosage: ONA IN MORNING AND ONE AT NIGHT
     Route: 048
     Dates: start: 20090416
  6. LEFLUNOMIDE. [Concomitant]
     Active Substance: LEFLUNOMIDE
  7. LEVOTHYROXINUM [Concomitant]
     Indication: GOITRE
     Dosage: ONE IN THE MORNING
     Route: 048
     Dates: start: 20100310
  8. LIV 52 [Concomitant]
     Indication: HEPATIC STEATOSIS
     Route: 048
     Dates: start: 20110523
  9. HUMIRA [Suspect]
     Active Substance: ADALIMUMAB
     Indication: RHEUMATOID ARTHRITIS
     Route: 058
     Dates: start: 20140514, end: 20150223
  10. ASPARTATE K/MG [Concomitant]
     Indication: HYPERTENSION
     Dosage: ONE IN MORNING AND ONE AT NIGHT
     Route: 048
     Dates: start: 20090416
  11. ACIDUM SALYCILICUM [Concomitant]
     Indication: HYPERTENSION
     Dosage: ONE IN AFTERNOON
     Route: 048
     Dates: start: 20090416
  12. PANTOPRAZOLE SODIUM. [Concomitant]
     Active Substance: PANTOPRAZOLE SODIUM
     Indication: GASTRITIS
     Dates: start: 20090416
  13. TIOTROPIUM BROMIDE [Concomitant]
     Active Substance: TIOTROPIUM BROMIDE
     Indication: BRONCHIECTASIS
     Route: 048
     Dates: start: 20110523

REACTIONS (41)
  - Mitral valve incompetence [Unknown]
  - Cardiac failure chronic [Unknown]
  - Hepatic steatosis [Unknown]
  - Angiopathy [Unknown]
  - Osteoarthritis [Unknown]
  - Bronchiectasis [Unknown]
  - Myocardial infarction [Unknown]
  - Hypothyroidism [Unknown]
  - Pallor [Unknown]
  - Age-related macular degeneration [Unknown]
  - Hypertonia [Unknown]
  - Ischaemic stroke [Recovered/Resolved]
  - Ventricular extrasystoles [Unknown]
  - Scar [Unknown]
  - Diplopia [Recovered/Resolved]
  - Aortic arteriosclerosis [Unknown]
  - Left ventricular hypertrophy [Unknown]
  - Vascular calcification [Unknown]
  - Hypertension [Unknown]
  - Emphysema [Unknown]
  - Arrhythmia [Unknown]
  - Nystagmus [Unknown]
  - Strabismus [Unknown]
  - Carotid arteriosclerosis [Unknown]
  - Aortic valve incompetence [Unknown]
  - Sjogren^s syndrome [Unknown]
  - Carotid intima-media thickness increased [Unknown]
  - Aortic calcification [Unknown]
  - Pneumonia [Recovered/Resolved]
  - Acute pulmonary oedema [Recovered/Resolved]
  - Interstitial lung disease [Unknown]
  - Coordination abnormal [Unknown]
  - Pleurisy [Recovered/Resolved]
  - Anxiety [Unknown]
  - Urinary tract infection bacterial [Unknown]
  - Chronic obstructive pulmonary disease [Unknown]
  - Ischaemic cardiomyopathy [Unknown]
  - Enophthalmos [Unknown]
  - Abasia [Unknown]
  - Panic disorder [Unknown]
  - Haematuria [Unknown]

NARRATIVE: CASE EVENT DATE: 2015
